FAERS Safety Report 9908523 (Version 1)
Quarter: 2014Q1

REPORT INFORMATION
  Report Type: Spontaneous
  Country: US (occurrence: None)
  Receive Date: 20140212
  Receipt Date: 20140212
  Transmission Date: 20141002
  Serious: Yes (Hospitalization)
  Sender: FDA-Public Use
  Company Number: None

PATIENT
  Age: 67 Year
  Sex: Male
  Weight: 136.6 kg

DRUGS (1)
  1. AMERIGEL [Suspect]
     Dates: start: 20130110, end: 20130312

REACTIONS (3)
  - Erythema multiforme [None]
  - Skin irritation [None]
  - Skin lesion [None]
